FAERS Safety Report 9036939 (Version 1)
Quarter: 2013Q1

REPORT INFORMATION
  Report Type: Spontaneous
  Country: US (occurrence: None)
  Receive Date: 20130118
  Receipt Date: 20130118
  Transmission Date: 20140127
  Serious: Yes (Other)
  Sender: FDA-Public Use
  Company Number: None

PATIENT
  Age: 68 Year
  Sex: Female
  Weight: 63.5 kg

DRUGS (1)
  1. MECLIZINE [Suspect]
     Indication: ANTIALLERGIC THERAPY
     Route: 048
     Dates: start: 20130116, end: 20130117

REACTIONS (2)
  - Dizziness [None]
  - Eye pain [None]
